FAERS Safety Report 10146812 (Version 4)
Quarter: 2015Q1

REPORT INFORMATION
  Report Type: Report from Study
  Country: US (occurrence: US)
  Receive Date: 20140501
  Receipt Date: 20150306
  Transmission Date: 20150720
  Serious: Yes (Hospitalization, Other)
  Sender: FDA-Public Use
  Company Number: US-BAYER-2014-054716

PATIENT
  Age: 84 Year
  Sex: Female
  Weight: 59.86 kg

DRUGS (2)
  1. NEXAVAR [Suspect]
     Active Substance: SORAFENIB
     Indication: HEPATOCELLULAR CARCINOMA
     Dosage: 200 MG, BID
     Route: 048
     Dates: start: 20140405, end: 20140415
  2. NEXAVAR [Suspect]
     Active Substance: SORAFENIB
     Indication: HEPATOCELLULAR CARCINOMA
     Dosage: 200 MG, BID
     Route: 048
     Dates: start: 201404

REACTIONS (5)
  - Cerebrovascular accident [None]
  - Haemorrhage [None]
  - Diabetes mellitus inadequate control [None]
  - Diarrhoea [None]
  - Blister [None]

NARRATIVE: CASE EVENT DATE: 201404
